FAERS Safety Report 4838201-0 (Version None)
Quarter: 2005Q4

REPORT INFORMATION
  Report Type: 
  Country: None (occurrence: None)
  Receive Date: 20051123
  Receipt Date: 20051024
  Transmission Date: 20060501
  Serious: Yes (Death)
  Sender: FDA-Public Use
  Company Number: 2005-CZ-00957

PATIENT
  Sex: Male

DRUGS (4)
  1. IPRATROPIUM [Suspect]
     Dosage: RESPIRATORY (INHALATION)
     Route: 055
  2. SALBUTAMOL AEROSOL INHALER BP 100 UG (SALBUTAMOL) [Suspect]
     Route: 055
  3. PERINDOPRIL [Suspect]
     Dosage: 2 MG OD
  4. BUDESONIDE W/FORMOTEROL FUMARATE [Suspect]
     Dosage: 400/12 MCG
     Route: 055

REACTIONS (1)
  - CHRONIC OBSTRUCTIVE PULMONARY DISEASE [None]
